FAERS Safety Report 10384106 (Version 2)
Quarter: 2014Q3

REPORT INFORMATION
  Report Type: Report from Study
  Country: BR (occurrence: BR)
  Receive Date: 20140814
  Receipt Date: 20140826
  Transmission Date: 20150326
  Serious: Yes (Other)
  Sender: FDA-Public Use
  Company Number: PHHY2014BR097411

PATIENT
  Age: 23 Year
  Sex: Female
  Weight: 60 kg

DRUGS (5)
  1. N-ACETYLCYSTEINE [Concomitant]
     Active Substance: ACETYLCYSTEINE
     Indication: HYPERSENSITIVITY
  2. N-ACETYLCYSTEINE [Concomitant]
     Active Substance: ACETYLCYSTEINE
     Indication: DYSPNOEA
     Dosage: 2 DF, DAILY
     Dates: start: 201311
  3. GILENYA [Suspect]
     Active Substance: FINGOLIMOD HYDROCHLORIDE
     Indication: MULTIPLE SCLEROSIS
     Dosage: 1 DF, DAILY
     Route: 048
     Dates: start: 201311
  4. VITAMIN C [Concomitant]
     Active Substance: ASCORBIC ACID
     Indication: DYSPNOEA
  5. VITAMIN C [Concomitant]
     Active Substance: ASCORBIC ACID
     Indication: RHINORRHOEA
     Dosage: 2 DF, QD 2 OR 3 TABS DAILY

REACTIONS (7)
  - Back pain [Recovered/Resolved]
  - Movement disorder [Recovered/Resolved]
  - Urinary tract infection [Recovered/Resolved]
  - Hypotension [Recovered/Resolved]
  - Syncope [Recovered/Resolved]
  - Dysuria [Recovered/Resolved]
  - Gait disturbance [Recovered/Resolved]

NARRATIVE: CASE EVENT DATE: 20140731
